FAERS Safety Report 20310503 (Version 2)
Quarter: 2023Q1

REPORT INFORMATION
  Report Type: Report from Study
  Country: IL (occurrence: IL)
  Receive Date: 20220107
  Receipt Date: 20230306
  Transmission Date: 20230417
  Serious: Yes (Other)
  Sender: FDA-Public Use
  Company Number: IL-KOREA IPSEN Pharma-2022-00174

PATIENT
  Age: 27 Year
  Sex: Female

DRUGS (5)
  1. LANREOTIDE ACETATE [Suspect]
     Active Substance: LANREOTIDE ACETATE
     Indication: Pancreatic neuroendocrine tumour
     Route: 058
     Dates: start: 201904
  2. LANREOTIDE ACETATE [Suspect]
     Active Substance: LANREOTIDE ACETATE
     Route: 058
     Dates: start: 20190505
  3. LANREOTIDE ACETATE [Suspect]
     Active Substance: LANREOTIDE ACETATE
     Route: 058
     Dates: start: 20190505
  4. LAMOTRIGINE [Concomitant]
     Active Substance: LAMOTRIGINE
  5. CADEX [Concomitant]

REACTIONS (5)
  - Hypoglycaemic seizure [Unknown]
  - Cholangitis [Unknown]
  - Hypoglycaemia [Unknown]
  - Condition aggravated [Unknown]
  - Device occlusion [Unknown]

NARRATIVE: CASE EVENT DATE: 20211201
